FAERS Safety Report 17728354 (Version 1)
Quarter: 2020Q2

REPORT INFORMATION
  Report Type: Spontaneous
  Country: US (occurrence: US)
  Receive Date: 20200429
  Receipt Date: 20200429
  Transmission Date: 20200714
  Serious: Yes (Other)
  Sender: FDA-Public Use
  Company Number: None

PATIENT
  Age: 18 Year
  Sex: Female
  Weight: 61.23 kg

DRUGS (1)
  1. PARAGARD T 380A [Suspect]
     Active Substance: COPPER
     Indication: CONTRACEPTION
     Dates: start: 20170315

REACTIONS (4)
  - Pain in extremity [None]
  - Device expulsion [None]
  - Device breakage [None]
  - Abdominal pain [None]

NARRATIVE: CASE EVENT DATE: 20200428
